FAERS Safety Report 12768544 (Version 3)
Quarter: 2016Q4

REPORT INFORMATION
  Report Type: Report from Study
  Country: CA (occurrence: CA)
  Receive Date: 20160921
  Receipt Date: 20161219
  Transmission Date: 20170207
  Serious: Yes (Hospitalization)
  Sender: FDA-Public Use
  Company Number: CA-VERTEX PHARMACEUTICALS-2016-005439

PATIENT
  Age: 24 Year
  Sex: Female

DRUGS (1)
  1. ORKAMBI [Suspect]
     Active Substance: IVACAFTOR\LUMACAFTOR
     Indication: CYSTIC FIBROSIS
     Dosage: 200-125 MG, BID
     Route: 048
     Dates: start: 201607, end: 20160915

REACTIONS (1)
  - Lung transplant [Recovered/Resolved]

NARRATIVE: CASE EVENT DATE: 201609
